FAERS Safety Report 8310710-1 (Version None)
Quarter: 2012Q2

REPORT INFORMATION
  Report Type: 
  Country: None (occurrence: None)
  Receive Date: 20120425
  Receipt Date: 20120416
  Transmission Date: 20120825
  Serious: Yes (Other)
  Sender: FDA-Public Use
  Company Number: FR-ROCHE-1060714

PATIENT
  Sex: Male

DRUGS (2)
  1. IRINOTECAN HCL [Concomitant]
     Indication: GLIOBLASTOMA
  2. AVASTIN [Suspect]
     Indication: GLIOBLASTOMA

REACTIONS (1)
  - RETINAL ARTERY OCCLUSION [None]
